FAERS Safety Report 21640939 (Version 2)
Quarter: 2022Q4

REPORT INFORMATION
  Report Type: Spontaneous
  Country: US (occurrence: US)
  Receive Date: 20221125
  Receipt Date: 20221213
  Transmission Date: 20230113
  Serious: Yes (Other)
  Sender: FDA-Public Use
  Company Number: None

PATIENT

DRUGS (30)
  1. PREVIDENT [Suspect]
     Active Substance: SODIUM FLUORIDE
     Indication: Product used for unknown indication
     Dosage: UNK
     Dates: start: 20190603
  2. PREVIDENT 5000 DRY MOUTH [Suspect]
     Active Substance: SODIUM FLUORIDE
     Dosage: USE TO BRUSH FOR AT LEAST 1 MIN
     Dates: start: 20170831
  3. HEPATITIS B VIRUS VACCINE [Suspect]
     Active Substance: HEPATITIS B VIRUS VACCINE
     Indication: Prophylaxis
     Dosage: 1 ML (DELTOID LEFT)
     Route: 030
     Dates: start: 20181106
  4. HEPATITIS B VIRUS VACCINE [Suspect]
     Active Substance: HEPATITIS B VIRUS VACCINE
     Dosage: 1 ML (DELTOID RIGHT)
     Route: 030
     Dates: start: 20181211
  5. HEPATITIS B VIRUS VACCINE [Suspect]
     Active Substance: HEPATITIS B VIRUS VACCINE
     Dosage: UNK
     Route: 030
     Dates: start: 20190524
  6. HEPATITIS A VIRUS STRAIN HM175 ANTIGEN (FORMALDEHYDE INACTIVATED) [Suspect]
     Active Substance: HEPATITIS A VIRUS STRAIN HM175 ANTIGEN (FORMALDEHYDE INACTIVATED)
     Indication: Prophylaxis
     Dosage: 1 ML (DELTOID RIGHT)
     Route: 030
     Dates: start: 20181106
  7. HEPATITIS A VIRUS STRAIN HM175 ANTIGEN (FORMALDEHYDE INACTIVATED) [Suspect]
     Active Substance: HEPATITIS A VIRUS STRAIN HM175 ANTIGEN (FORMALDEHYDE INACTIVATED)
     Dosage: DELTOID RIGHT
     Route: 030
     Dates: start: 20190524
  8. XELJANZ [Concomitant]
     Active Substance: TOFACITINIB CITRATE
     Indication: Colitis ulcerative
     Dosage: TAKE 1 TABLET TWICE A DAY FOR 90 DAYS
     Route: 048
     Dates: start: 20220106
  9. BENADRYL [Concomitant]
     Active Substance: DIPHENHYDRAMINE HYDROCHLORIDE
     Indication: Hypersensitivity
     Dosage: 25 MILLIGRAM
     Dates: start: 20200422
  10. CITALOPRAM [Concomitant]
     Active Substance: CITALOPRAM HYDROBROMIDE
     Dosage: TAKE 1.5 TABLETS BY MOUTH EVERY DAY
     Dates: start: 20220712
  11. FERROUS SULFATE [Concomitant]
     Active Substance: FERROUS SULFATE
     Dosage: TAKE 1 TABLET BY MOUTH EVERY DAY
     Dates: start: 20210712
  12. GLATIRAMER [Concomitant]
     Active Substance: GLATIRAMER
     Dosage: 40 MG/ML
     Route: 058
     Dates: start: 20220913
  13. LOPERAMIDE [Concomitant]
     Active Substance: LOPERAMIDE
     Dosage: 2 MILLIGRAM
     Dates: start: 20200422
  14. LORATADINE AND PSEUDOEPHEDRINE SULFATE [Concomitant]
     Active Substance: LORATADINE\PSEUDOEPHEDRINE SULFATE
     Dosage: 120 MILLIGRAM
     Route: 048
     Dates: start: 20210624
  15. LUMIGAN [Concomitant]
     Active Substance: BIMATOPROST
     Dosage: 0.01 UNK
     Dates: start: 20210624
  16. VITAMINS NOS [Concomitant]
     Active Substance: VITAMINS
     Dosage: UNK
     Dates: start: 20211021
  17. SIMVASTATIN [Concomitant]
     Active Substance: SIMVASTATIN
     Dosage: TAKE 1/2 TABLET BY MOUTH DAILY
     Route: 048
     Dates: start: 20220930
  18. ENTYVIO [Concomitant]
     Active Substance: VEDOLIZUMAB
     Indication: Colitis ulcerative
  19. PFIZER-BIONTECH COVID-19 VACCINE [Concomitant]
     Active Substance: TOZINAMERAN
     Dosage: 0.3 ML, DELTOID RIGHT, (NDC 59267100001)
     Route: 030
     Dates: start: 20210316
  20. PFIZER-BIONTECH COVID-19 VACCINE [Concomitant]
     Active Substance: TOZINAMERAN
     Dosage: 0.3 ML, DELTOID RIGHT, (NDC 59267100001)
     Route: 030
     Dates: start: 20210604
  21. PFIZER-BIONTECH COVID-19 VACCINE [Concomitant]
     Active Substance: TOZINAMERAN
     Dosage: 0.3 ML, DELTOID RIGHT, (NDC 59267100001)
     Route: 030
     Dates: start: 20210827
  22. PFIZER-BIONTECH COVID-19 VACCINE [Concomitant]
     Active Substance: TOZINAMERAN
     Dosage: 0.3 ML, DELTOID RIGHT, (NDC 59267102501)
     Route: 030
     Dates: start: 20220803
  23. INFLUENZA VIRUS VACCINE [Concomitant]
     Active Substance: INFLUENZA VIRUS VACCINE
     Dosage: UNK
     Dates: start: 20181026
  24. INFLUENZA VIRUS VACCINE [Concomitant]
     Active Substance: INFLUENZA VIRUS VACCINE
     Dosage: UNK
     Dates: start: 20191031
  25. INFLUENZA VIRUS VACCINE [Concomitant]
     Active Substance: INFLUENZA VIRUS VACCINE
     Dosage: UNK
     Dates: start: 20200927
  26. INFLUENZA VIRUS VACCINE [Concomitant]
     Active Substance: INFLUENZA VIRUS VACCINE
     Dosage: UNK
     Dates: start: 20211020
  27. FERRITIN [Concomitant]
     Active Substance: FERRITIN
     Indication: Mineral supplementation
  28. PNEUMOCOCCAL VACCINE POLYVALENT NOS [Concomitant]
     Active Substance: PNEUMOCOCCAL VACCINE POLYVALENT
     Dosage: 0.5 MILLILITER
     Dates: start: 20171026
  29. ZOSTER [Concomitant]
     Dosage: UNK
     Dates: start: 20220818
  30. ZOSTER [Concomitant]
     Dosage: UNK
     Dates: start: 20170817

REACTIONS (5)
  - Multiple sclerosis [Recovered/Resolved]
  - Colitis ulcerative [Recovering/Resolving]
  - Condition aggravated [Unknown]
  - Anxiety disorder [Unknown]
  - Osteoarthritis [Unknown]

NARRATIVE: CASE EVENT DATE: 20190404
